FAERS Safety Report 4631193-9 (Version None)
Quarter: 2005Q2

REPORT INFORMATION
  Report Type: 
  Country: None (occurrence: None)
  Receive Date: 20050406
  Receipt Date: 20050322
  Transmission Date: 20051028
  Serious: Yes (Hospitalization)
  Sender: FDA-Public Use
  Company Number: USA050291667

PATIENT
  Age: 52 Year
  Sex: Male
  Weight: 86 kg

DRUGS (5)
  1. CIALIS [Suspect]
     Indication: ERECTILE DYSFUNCTION
     Dosage: 50 MG
     Dates: start: 20050301
  2. MULTIVITAMIN [Concomitant]
  3. DIFLUCAN [Concomitant]
  4. NEXIUM [Concomitant]
  5. PEPTO-BISMOL (BISMUTH SUBSALICYLATE) [Concomitant]

REACTIONS (3)
  - DRUG EFFECT DECREASED [None]
  - GALLBLADDER DISORDER [None]
  - PERFORATED ULCER [None]
